FAERS Safety Report 17290539 (Version 1)
Quarter: 2020Q1

REPORT INFORMATION
  Report Type: Spontaneous
  Country: US (occurrence: US)
  Receive Date: 20200121
  Receipt Date: 20200121
  Transmission Date: 20200409
  Serious: Yes (Other)
  Sender: FDA-Public Use
  Company Number: US-TEVA-2020-US-1171044

PATIENT
  Age: 4 Decade
  Sex: Male

DRUGS (10)
  1. MELATONIN [Interacting]
     Active Substance: MELATONIN
     Dosage: 12 MILLIGRAM DAILY;
     Route: 065
  2. MIRTAZAPINE. [Suspect]
     Active Substance: MIRTAZAPINE
     Dosage: 60 MILLIGRAM DAILY;
     Route: 065
  3. PROPRANOLOL [Interacting]
     Active Substance: PROPRANOLOL HYDROCHLORIDE
     Dosage: 20 MILLIGRAM DAILY; SUMMER 2016
     Route: 065
     Dates: start: 2016
  4. MELATONIN [Interacting]
     Active Substance: MELATONIN
     Dosage: 3 MILLIGRAM DAILY;
     Route: 065
  5. N-ACETYLCYSTEINE [Concomitant]
     Active Substance: ACETYLCYSTEINE
     Dosage: 2400 MILLIGRAM DAILY;
     Route: 065
  6. MELATONIN [Interacting]
     Active Substance: MELATONIN
     Dosage: 6 MILLIGRAM DAILY;
     Route: 065
  7. MELATONIN [Interacting]
     Active Substance: MELATONIN
     Dosage: 9 MILLIGRAM DAILY;
     Route: 065
  8. OLANZAPINE. [Suspect]
     Active Substance: OLANZAPINE
     Dosage: 30 MILLIGRAM DAILY;
     Route: 065
  9. PROPRANOLOL [Interacting]
     Active Substance: PROPRANOLOL HYDROCHLORIDE
     Indication: TARDIVE DYSKINESIA
     Dosage: 40 MILLIGRAM DAILY; AGAIN RESTARTED AT SAME DOSE TO TREAT THE FEATURES OF TARDIVE DYSKINESIA
     Route: 065
  10. VITAMIN D3 [Concomitant]
     Active Substance: CHOLECALCIFEROL
     Dosage: 2000 IU (INTERNATIONAL UNIT) DAILY;
     Route: 065

REACTIONS (4)
  - Tardive dyskinesia [Recovered/Resolved]
  - Unmasking of previously unidentified disease [Recovered/Resolved]
  - Drug level decreased [Unknown]
  - Drug interaction [Unknown]

NARRATIVE: CASE EVENT DATE: 2016
